FAERS Safety Report 8015710-7 (Version None)
Quarter: 2011Q4

REPORT INFORMATION
  Report Type: 
  Country: None (occurrence: None)
  Receive Date: 20111230
  Receipt Date: 20111216
  Transmission Date: 20120403
  Serious: Yes (Hospitalization)
  Sender: FDA-Public Use
  Company Number: PHHY2011PL111414

PATIENT
  Age: 63 Year
  Sex: Female

DRUGS (3)
  1. MYCOPHENOLATE MOFETIL [Concomitant]
     Dosage: 2 G, UNK
  2. CYCLOSPORINE [Suspect]
     Indication: RENAL TRANSPLANT
     Dosage: 100 MG, TWO TIMES
  3. GLUCOCORTICOSTEROIDS [Concomitant]

REACTIONS (8)
  - COMPLICATIONS OF TRANSPLANTED KIDNEY [None]
  - KIDNEY FIBROSIS [None]
  - VESICOURETERIC REFLUX [None]
  - PROTEINURIA [None]
  - RENAL TUBULAR ATROPHY [None]
  - BLOOD CREATININE INCREASED [None]
  - FOCAL SEGMENTAL GLOMERULOSCLEROSIS [None]
  - BLOOD PRESSURE ABNORMAL [None]
